FAERS Safety Report 9188890 (Version 1)
Quarter: 2013Q1

REPORT INFORMATION
  Report Type: Spontaneous
  Country: US (occurrence: US)
  Receive Date: 20130326
  Receipt Date: 20130326
  Transmission Date: 20140127
  Serious: No
  Sender: FDA-Public Use
  Company Number: US-TEVA-393546USA

PATIENT
  Age: 29 Year
  Sex: Female
  Weight: 56.75 kg

DRUGS (3)
  1. PLAN B ONE-STEP [Suspect]
     Indication: POST COITAL CONTRACEPTION
     Dosage: 1.5 MILLIGRAM DAILY;
     Route: 048
     Dates: start: 20130217, end: 20130217
  2. MULTIVITAMIN [Concomitant]
     Indication: MEDICAL DIET
  3. B-COMPLEX [Concomitant]
     Indication: MEDICAL DIET

REACTIONS (4)
  - Menstruation irregular [Recovered/Resolved]
  - Metrorrhagia [Recovered/Resolved]
  - Abdominal pain [Not Recovered/Not Resolved]
  - Menstruation delayed [Not Recovered/Not Resolved]
